FAERS Safety Report 18340310 (Version 1)
Quarter: 2020Q4

REPORT INFORMATION
  Report Type: Spontaneous
  Country: US (occurrence: US)
  Receive Date: 20201002
  Receipt Date: 20201002
  Transmission Date: 20210113
  Serious: Yes (Other)
  Sender: FDA-Public Use
  Company Number: US-GILEAD-2020-0497194

PATIENT
  Age: 38 Year
  Sex: Female

DRUGS (10)
  1. HYDROXYCHLOROQUINE [Concomitant]
     Active Substance: HYDROXYCHLOROQUINE
  2. CONVALESCENT PLASMA [Concomitant]
     Active Substance: HUMAN PLASMA
  3. CEFTRIAXONE. [Concomitant]
     Active Substance: CEFTRIAXONE
  4. OXYGEN. [Concomitant]
     Active Substance: OXYGEN
  5. METHYLPREDNISOLONE. [Concomitant]
     Active Substance: METHYLPREDNISOLONE
  6. INSULIN [Concomitant]
     Active Substance: INSULIN NOS
  7. REMDESIVIR. [Suspect]
     Active Substance: REMDESIVIR
     Indication: COVID-19
     Dosage: UNK
     Route: 065
  8. AZITHROMYCIN ANHYDROUS. [Concomitant]
     Active Substance: AZITHROMYCIN ANHYDROUS
  9. BETAMETHASONE. [Concomitant]
     Active Substance: BETAMETHASONE
  10. HEPARIN [Concomitant]
     Active Substance: HEPARIN SODIUM

REACTIONS (3)
  - Maternal exposure during pregnancy [Recovered/Resolved]
  - Premature rupture of membranes [Recovered/Resolved]
  - Caesarean section [Unknown]
